FAERS Safety Report 17415105 (Version 2)
Quarter: 2020Q3

REPORT INFORMATION
  Report Type: Spontaneous
  Country: FR (occurrence: FR)
  Receive Date: 20200213
  Receipt Date: 20200731
  Transmission Date: 20201102
  Serious: Yes (Hospitalization, Other)
  Sender: FDA-Public Use
  Company Number: FR-009507513-2001FRA008263

PATIENT
  Sex: Female
  Weight: 55 kg

DRUGS (2)
  1. TRUVADA [Concomitant]
     Active Substance: EMTRICITABINE\TENOFOVIR DISOPROXIL FUMARATE
  2. ISENTRESS [Suspect]
     Active Substance: RALTEGRAVIR POTASSIUM
     Indication: HIV INFECTION
     Dosage: 600 MILLIGRAM, BID
     Route: 048
     Dates: start: 20190101

REACTIONS (3)
  - Cervix carcinoma [Recovered/Resolved]
  - Ligament rupture [Not Recovered/Not Resolved]
  - Bone tuberculosis [Recovered/Resolved]

NARRATIVE: CASE EVENT DATE: 2019
